FAERS Safety Report 5233450-4 (Version None)
Quarter: 2007Q1

REPORT INFORMATION
  Report Type: 
  Country: None (occurrence: None)
  Receive Date: 20070206
  Receipt Date: 20070122
  Transmission Date: 20070707
  Serious: Yes (Other)
  Sender: FDA-Public Use
  Company Number: 2007RR-05474

PATIENT
  Age: 63 Year
  Sex: Female

DRUGS (2)
  1. MIRTAZAPINE [Suspect]
     Dosage: 15 MG, QD, UNK
  2. FLUOXETINE [Suspect]
     Dosage: 20 MG, QD, UNK

REACTIONS (2)
  - DRUG INTERACTION [None]
  - RESTLESS LEGS SYNDROME [None]
